FAERS Safety Report 9617775 (Version 2)
Quarter: 2014Q4

REPORT INFORMATION
  Report Type: Spontaneous
  Country: IT (occurrence: None)
  Receive Date: 20131009
  Receipt Date: 20131205
  Transmission Date: 20150529
  Serious: Yes (Hospitalization)
  Sender: FDA-Public Use
  Company Number: VAL_02756_2013

PATIENT
  Age: 66 Year
  Sex: Male
  Weight: 76 kg

DRUGS (14)
  1. ARICEPT [Concomitant]
     Active Substance: DONEPEZIL HYDROCHLORIDE
  2. SEROQUEL [Concomitant]
     Active Substance: QUETIAPINE FUMARATE
  3. CARDIOASPIRIN [Concomitant]
     Active Substance: ASPIRIN
  4. SODIUM BICARBONATE. [Concomitant]
     Active Substance: SODIUM BICARBONATE
  5. VALDOXAN [Concomitant]
     Active Substance: AGOMELATINE
  6. MODURETIC 5-50 [Concomitant]
     Active Substance: AMILORIDE HYDROCHLORIDE\HYDROCHLOROTHIAZIDE
  7. NOVONORM [Concomitant]
     Active Substance: REPAGLINIDE
  8. CIBACEN [Suspect]
     Active Substance: BENAZEPRIL HYDROCHLORIDE
     Indication: HYPERTENSION
     Route: 048
     Dates: start: 20070722, end: 20130902
  9. ALLOPURINOL. [Concomitant]
     Active Substance: ALLOPURINOL
  10. TRIAZOLAM. [Concomitant]
     Active Substance: TRIAZOLAM
  11. CARVIPRESS [Concomitant]
  12. LUCEN [Concomitant]
     Active Substance: ESOMEPRAZOLE
  13. TORVAST [Concomitant]
     Active Substance: ATORVASTATIN
  14. CALCITRIOL. [Concomitant]
     Active Substance: CALCITRIOL

REACTIONS (3)
  - Renal impairment [None]
  - Condition aggravated [None]
  - Rib fracture [None]

NARRATIVE: CASE EVENT DATE: 20130902
